FAERS Safety Report 19402289 (Version 1)
Quarter: 2021Q2

REPORT INFORMATION
  Report Type: Spontaneous
  Country: US (occurrence: US)
  Receive Date: 20210610
  Receipt Date: 20210610
  Transmission Date: 20210717
  Serious: Yes (Other)
  Sender: FDA-Public Use
  Company Number: US-COLLEGIUM PHARMACEUTICAL, INC.-2020CGM00252

PATIENT
  Age: 69 Year
  Sex: Male

DRUGS (1)
  1. XTAMPZA ER [Suspect]
     Active Substance: OXYCODONE
     Indication: BACK PAIN
     Dosage: 9 MG, TWICE
     Dates: start: 20200928, end: 20200928

REACTIONS (13)
  - Abdominal pain [Unknown]
  - Headache [Recovered/Resolved]
  - Arthralgia [Unknown]
  - Drug ineffective [Recovered/Resolved]
  - Cough [Recovered/Resolved]
  - Unevaluable event [Unknown]
  - Back pain [Unknown]
  - Hyperhidrosis [Unknown]
  - Blood pressure increased [Unknown]
  - Thinking abnormal [Unknown]
  - Nausea [Unknown]
  - Muscle spasms [Unknown]
  - Pyrexia [Unknown]

NARRATIVE: CASE EVENT DATE: 20200928
